FAERS Safety Report 16404425 (Version 1)
Quarter: 2019Q3

REPORT INFORMATION
  Report Type: Spontaneous
  Country: US (occurrence: US)
  Receive Date: 20190606
  Receipt Date: 20190606
  Transmission Date: 20191004
  Serious: No
  Sender: FDA-Public Use
  Company Number: None

PATIENT
  Age: 67 Year
  Sex: Female
  Weight: 58.5 kg

DRUGS (13)
  1. ESTRADIOL TABLET [Concomitant]
     Active Substance: ESTRADIOL
  2. SOFTGEL [Concomitant]
     Active Substance: ALPHA-TOCOPHEROL\ASCORBIC ACID\CHOLECALCIFEROL\COPPER\CYANOCOBALAMIN\FOLIC ACID\LUTEIN\OMEGA-3 FATTY ACIDS\PYRIDOXINE HYDROCHLORIDE\TAURINE\VITAMIN A PALMITATE\ZEAXANTHIN\ZINC PICOLINATE
  3. ATORVASTATIN TABLET [Concomitant]
     Active Substance: ATORVASTATIN
  4. ADVAIR 250/50 DISKUS [Concomitant]
  5. CENTRUM SILVER WOAN^S 50+ [Concomitant]
  6. OMEGA 3 SOFTGEL [Concomitant]
  7. FLUTICASONE PROPIONATE NASAL SPRAY [Concomitant]
     Active Substance: FLUTICASONE PROPIONATE
  8. CALTRATE 600+D3 TABLET [Concomitant]
  9. VITAMEN D3 2,000 IU [Concomitant]
  10. VITAMIN C TABLET [Concomitant]
  11. GLUCOSAMINE + CHONDROITIN COMPLEX TABLET [Concomitant]
  12. WIXELA INHUB [Suspect]
     Active Substance: FLUTICASONE PROPIONATE\SALMETEROL XINAFOATE
     Indication: ASTHMA
     Dosage: ?          OTHER STRENGTH:INHALLATIOND;QUANTITY:60 INHALATION(S);?
     Route: 055
     Dates: start: 20190410, end: 20190415
  13. BAYER 81 TABLET [Concomitant]

REACTIONS (4)
  - Nervousness [None]
  - Palpitations [None]
  - Anxiety [None]
  - Tremor [None]

NARRATIVE: CASE EVENT DATE: 20190410
